FAERS Safety Report 8238732-X (Version None)
Quarter: 2012Q1

REPORT INFORMATION
  Report Type: 
  Country: None (occurrence: None)
  Receive Date: 20120327
  Receipt Date: 20120316
  Transmission Date: 20120608
  Serious: Yes (Other)
  Sender: FDA-Public Use
  Company Number: US-AMGEN-USASP2012014137

PATIENT
  Age: 76 Year
  Sex: Male
  Weight: 92.517 kg

DRUGS (30)
  1. ARANESP [Suspect]
     Dosage: 200 MUG, QWK
     Dates: start: 20080507
  2. NEUPOGEN [Suspect]
     Indication: PRODUCT USED FOR UNKNOWN INDICATION
     Dosage: 300 MUG, QWK
  3. PREDNISONE TAB [Concomitant]
     Dosage: 5 MG, QD
     Route: 048
     Dates: start: 20111014
  4. OXYGEN [Concomitant]
     Dosage: 2.5 L, PRN
     Route: 045
  5. ARANESP [Suspect]
     Dosage: 300 MUG, QWK
     Route: 058
  6. MYFORTIC [Concomitant]
     Dosage: 180 MG, BID
  7. LEVOTHYROXINE SODIUM [Concomitant]
     Dosage: 150 MUG, QD
     Route: 048
  8. DIGOXIN [Concomitant]
     Dosage: 125 MUG, QOD
     Route: 048
  9. COENZYME Q10 [Concomitant]
     Dosage: 200 MG, QD
     Route: 048
  10. BYSTOLIC [Concomitant]
     Dosage: 10 MG, QD
     Route: 048
  11. SENSIPAR [Suspect]
     Indication: RENAL FAILURE CHRONIC
     Dosage: 30 MG, QD
     Route: 048
     Dates: start: 20120217
  12. SENSIPAR [Suspect]
     Dosage: 50 MG, QD
  13. MICARDIS [Concomitant]
     Dosage: 40 MG, QD
     Dates: start: 20120217
  14. HECTOROL [Concomitant]
     Dosage: 2.5 MUG, QD
     Dates: start: 20120104
  15. ADVAIR DISKUS 100/50 [Concomitant]
     Dosage: UNK UNK, Q12H
  16. ARANESP [Suspect]
     Indication: RENAL FAILURE CHRONIC
     Dosage: 300 MUG, QWK
     Route: 058
  17. SODIUM BICARBONATE [Concomitant]
     Dosage: 1 DF, BID
  18. PROGRAF [Concomitant]
     Dosage: 0.5 MG, BID
     Route: 048
  19. ERGOCALCIFEROL [Concomitant]
     Dosage: 50000 IU, Q2WK
     Route: 048
     Dates: start: 20111207
  20. ARANESP [Suspect]
     Dosage: 300 MUG, QWK
     Route: 058
  21. MAGNESIUM OXIDE [Concomitant]
     Dosage: 400 MG, BID
     Route: 048
     Dates: start: 20120217
  22. ISOSORBIDE MONONITRATE [Concomitant]
     Dosage: 60 MG, QD
     Route: 048
  23. PRAVASTATIN [Concomitant]
     Dosage: 20 MG, QD
  24. MYFORTIC [Concomitant]
     Dosage: 360 MG, BID
  25. FUROSEMIDE [Concomitant]
     Dosage: 40 MG, BID
     Route: 048
     Dates: start: 20120312
  26. ALLOPURINOL [Concomitant]
     Dosage: 100 MG, QD
  27. PROTONIX [Concomitant]
     Dosage: 40 MG, QD
     Route: 048
  28. PROGRAF [Concomitant]
     Dosage: 1 MG, BID
     Dates: start: 20120104
  29. COMBIVENT [Concomitant]
     Dosage: UNK UNK, PRN
  30. CALCITRATE [Concomitant]
     Dosage: 600 MG, TID
     Route: 048
     Dates: start: 20120217

REACTIONS (11)
  - THERAPEUTIC RESPONSE DECREASED [None]
  - HAEMOGLOBIN DECREASED [None]
  - APLASIA PURE RED CELL [None]
  - GAIT DISTURBANCE [None]
  - ASTHENIA [None]
  - MYALGIA [None]
  - DIARRHOEA [None]
  - DYSPNOEA EXERTIONAL [None]
  - CONSTIPATION [None]
  - FATIGUE [None]
  - MALAISE [None]
